FAERS Safety Report 16361245 (Version 1)
Quarter: 2020Q3

REPORT INFORMATION
  Report Type: Spontaneous
  Country: GB (occurrence: GB)
  Receive Date: 20190528
  Receipt Date: 20190528
  Transmission Date: 20201104
  Serious: Yes (Other)
  Sender: FDA-Public Use
  Company Number: GB-ASTRAZENECA-2019SE76335

PATIENT
  Sex: Male

DRUGS (4)
  1. ETORICOXIB. [Suspect]
     Active Substance: ETORICOXIB
     Dosage: UNK UNK, UNK
     Route: 065
  2. QUETIAPINE FUMARATE. [Suspect]
     Active Substance: QUETIAPINE FUMARATE
     Dosage: UNK UNK, UNK
     Route: 065
  3. CODEINE PHOSPHATE [Suspect]
     Active Substance: CODEINE PHOSPHATE
     Dosage: UNK UNK, UNK
     Route: 065
  4. ESOMEPRAZOLE. [Suspect]
     Active Substance: ESOMEPRAZOLE MAGNESIUM
     Dosage: UNK UNK, UNK
     Route: 065

REACTIONS (3)
  - Barrett^s oesophagus [Unknown]
  - Oesophageal disorder [Unknown]
  - Gastrointestinal polyp [Unknown]
